FAERS Safety Report 5358120-3 (Version None)
Quarter: 2007Q2

REPORT INFORMATION
  Report Type: 
  Country: None (occurrence: None)
  Receive Date: 20070530
  Receipt Date: 20061108
  Transmission Date: 20071010
  Serious: Yes (Hospitalization)
  Sender: FDA-Public Use
  Company Number: US200608004003

PATIENT
  Age: 48 Year
  Sex: Male
  Weight: 118.4 kg

DRUGS (9)
  1. ZYPREXA [Suspect]
     Indication: OBSESSIVE-COMPULSIVE DISORDER
     Dates: start: 19971021, end: 20040222
  2. PROZAC (FLUOXETINE HYDROCHLORIDDE) [Concomitant]
  3. ABILIFY [Concomitant]
  4. ARIPIPRAZOLE [Concomitant]
  5. SEROQUEL /UNK/ (QUETIAPINE FUMARATE) [Concomitant]
  6. GEODON [Concomitant]
  7. LITHIUM CARBONATE [Concomitant]
  8. ANAFRANIL /GFR/ (CLOMIPRAMINE HYDROCHLORIDE) [Concomitant]
  9. PROPRANOLOL [Concomitant]

REACTIONS (7)
  - ACETONAEMIA [None]
  - BLOOD CHOLESTEROL INCREASED [None]
  - DIABETES MELLITUS [None]
  - HYPERGLYCAEMIA [None]
  - HYPERTENSION [None]
  - METABOLIC DISORDER [None]
  - OBESITY [None]
